FAERS Safety Report 24373210 (Version 1)
Quarter: 2024Q3

REPORT INFORMATION
  Report Type: Spontaneous
  Country: US (occurrence: US)
  Receive Date: 20240927
  Receipt Date: 20240927
  Transmission Date: 20241017
  Serious: No
  Sender: AMGEN
  Company Number: US-AMGEN-USASP2024190509

PATIENT
  Sex: Female

DRUGS (17)
  1. REPATHA [Suspect]
     Active Substance: EVOLOCUMAB
     Indication: Product used for unknown indication
     Dosage: UNK
     Route: 065
  2. AUSTEDO [Suspect]
     Active Substance: DEUTETRABENAZINE
     Indication: Dyskinesia
     Dosage: UNK
     Route: 065
  3. XYZAL [Concomitant]
     Active Substance: LEVOCETIRIZINE DIHYDROCHLORIDE
  4. ALIGN [Concomitant]
     Active Substance: BIFIDOBACTERIUM LONGUM SUBSP. INFANTIS
  5. BIOTIN [Concomitant]
     Active Substance: BIOTIN
  6. CYMBALTA [Concomitant]
     Active Substance: DULOXETINE HYDROCHLORIDE
  7. GABAPENTIN [Concomitant]
     Active Substance: GABAPENTIN
  8. HYDRALAZINE [Concomitant]
     Active Substance: HYDRALAZINE HYDROCHLORIDE
  9. LAMOTRIGINE [Concomitant]
     Active Substance: LAMOTRIGINE
  10. MAGNESIUM [Concomitant]
     Active Substance: MAGNESIUM
  11. MELATONIN [Concomitant]
     Active Substance: MELATONIN
  12. METFORMIN [Concomitant]
     Active Substance: METFORMIN HYDROCHLORIDE
  13. MIRTAZAPINE [Concomitant]
     Active Substance: MIRTAZAPINE
  14. VITAMINS [Concomitant]
     Active Substance: VITAMINS
  15. PHENELZINE SULFATE [Concomitant]
     Active Substance: PHENELZINE SULFATE
  16. VITAMIN D [Concomitant]
     Active Substance: VITAMIN D NOS
  17. Mcg [Concomitant]

REACTIONS (1)
  - Dysgeusia [Not Recovered/Not Resolved]
